FAERS Safety Report 16408344 (Version 1)
Quarter: 2019Q2

REPORT INFORMATION
  Report Type: Report from Study
  Country: ES (occurrence: ES)
  Receive Date: 20190610
  Receipt Date: 20190610
  Transmission Date: 20190711
  Serious: Yes (Other)
  Sender: FDA-Public Use
  Company Number: ES-TEVA-2019-ES-1059809

PATIENT
  Age: 35 Year
  Sex: Female

DRUGS (1)
  1. COPAXONE [Suspect]
     Active Substance: GLATIRAMER ACETATE
     Indication: MULTIPLE SCLEROSIS
     Route: 058
     Dates: start: 20190503, end: 20190524

REACTIONS (7)
  - Musculoskeletal stiffness [Recovering/Resolving]
  - Tachycardia [Recovering/Resolving]
  - Vision blurred [Recovering/Resolving]
  - Lymphadenopathy [Recovering/Resolving]
  - Dyspnoea [Recovering/Resolving]
  - Alcohol poisoning [Recovering/Resolving]
  - Discomfort [Recovering/Resolving]

NARRATIVE: CASE EVENT DATE: 201905
